FAERS Safety Report 7746927-4 (Version None)
Quarter: 2011Q3

REPORT INFORMATION
  Report Type: 
  Country: None (occurrence: None)
  Receive Date: 20110913
  Receipt Date: 20110830
  Transmission Date: 20111222
  Serious: Yes (Other)
  Sender: FDA-Public Use
  Company Number: PHHY2011BR77353

PATIENT
  Sex: Female

DRUGS (1)
  1. DIOVAN [Suspect]
     Dosage: 320 MG

REACTIONS (3)
  - CEREBROVASCULAR ACCIDENT [None]
  - APHASIA [None]
  - HYPOAESTHESIA [None]
